FAERS Safety Report 17109852 (Version 1)
Quarter: 2019Q4

REPORT INFORMATION
  Report Type: Spontaneous
  Country: CN (occurrence: CN)
  Receive Date: 20191204
  Receipt Date: 20191204
  Transmission Date: 20200122
  Serious: Yes (Other)
  Sender: FDA-Public Use
  Company Number: CN-ROCHE-2487423

PATIENT
  Age: 51 Year
  Sex: Female

DRUGS (8)
  1. VINCRISTINE [Concomitant]
     Active Substance: VINCRISTINE
     Indication: NON-HODGKIN^S LYMPHOMA
     Route: 065
     Dates: start: 20180724, end: 20181224
  2. PREDNISONE. [Concomitant]
     Active Substance: PREDNISONE
     Indication: NON-HODGKIN^S LYMPHOMA
     Dosage: FROM DAY 1 TO DAY 5
     Route: 065
     Dates: start: 20180724, end: 20181224
  3. MABTHERA [Suspect]
     Active Substance: RITUXIMAB
     Indication: NON-HODGKIN^S LYMPHOMA
     Dosage: ON DAY 1
     Route: 065
     Dates: start: 20180724, end: 20181224
  4. CYCLOPHOSPHAMIDE. [Concomitant]
     Active Substance: CYCLOPHOSPHAMIDE
     Dosage: 500MG ON DAY 1, 400MG ON DAY 2 AND DAY 3
     Route: 065
     Dates: start: 20190320
  5. PIRARUBICIN [Concomitant]
     Active Substance: PIRARUBICIN
     Indication: NON-HODGKIN^S LYMPHOMA
     Dosage: ON DAY 1
     Route: 065
     Dates: start: 20180724, end: 20181224
  6. MABTHERA [Suspect]
     Active Substance: RITUXIMAB
     Dosage: ON DAY 0
     Route: 065
     Dates: start: 20190320
  7. CLADRIBINE. [Concomitant]
     Active Substance: CLADRIBINE
     Indication: NON-HODGKIN^S LYMPHOMA
     Dosage: FROM DAY 1 TO DAY 3
     Route: 065
     Dates: start: 20190320
  8. CYCLOPHOSPHAMIDE. [Concomitant]
     Active Substance: CYCLOPHOSPHAMIDE
     Indication: NON-HODGKIN^S LYMPHOMA
     Dosage: ON DAY 1
     Route: 065
     Dates: start: 20180724, end: 20181224

REACTIONS (5)
  - Renal cyst [Unknown]
  - Pyrexia [Recovering/Resolving]
  - Nephrolithiasis [Unknown]
  - Spinal osteoarthritis [Unknown]
  - Bone marrow failure [Recovering/Resolving]

NARRATIVE: CASE EVENT DATE: 2019
